FAERS Safety Report 8871616 (Version 1)
Quarter: 2012Q4

REPORT INFORMATION
  Report Type: Spontaneous
  Country: US (occurrence: None)
  Receive Date: 20121024
  Receipt Date: 20121024
  Transmission Date: 20130627
  Serious: Yes (Hospitalization)
  Sender: FDA-Public Use
  Company Number: 2012EXPUS00049

PATIENT
  Age: 63 Year
  Sex: Female

DRUGS (7)
  1. EXPAREL [Suspect]
     Indication: POSTOPERATIVE ANALGESIA
     Dates: start: 20121004, end: 20121004
  2. METOCLOPRAMIDE [Concomitant]
  3. BISOPROLOL FUMARATE [Concomitant]
  4. PROTONIX (PANTOPRAZOLE SODIUM SESQUIHYDRATE) [Concomitant]
  5. METFORMIN HCL (METFORMIN HYDROCHLORIDE) [Concomitant]
  6. CENTRUM SILVER [Concomitant]
  7. CALTRATE [Concomitant]

REACTIONS (3)
  - Delayed recovery from anaesthesia [None]
  - Hypopnoea [None]
  - Wheezing [None]
